FAERS Safety Report 24385093 (Version 1)
Quarter: 2024Q4

REPORT INFORMATION
  Report Type: Spontaneous
  Country: FR (occurrence: FR)
  Receive Date: 20241001
  Receipt Date: 20241001
  Transmission Date: 20250114
  Serious: Yes (Hospitalization)
  Sender: VERTEX
  Company Number: FR-VERTEX PHARMACEUTICALS-2024-015182

PATIENT
  Sex: Female

DRUGS (2)
  1. ELEXACAFTOR\IVACAFTOR\TEZACAFTOR [Suspect]
     Active Substance: ELEXACAFTOR\IVACAFTOR\TEZACAFTOR
     Indication: Cystic fibrosis
     Dosage: 2 TABLETS IN AM, 75MG IVACAFTOR/ 50MG TEZACAFTOR/ 100MG ELEXACAFTOR
     Route: 048
  2. KALYDECO [Suspect]
     Active Substance: IVACAFTOR
     Indication: Cystic fibrosis
     Dosage: 1 TABLET IN THE EVENING
     Route: 048

REACTIONS (1)
  - Neonatal infection [Unknown]
